FAERS Safety Report 6069594-7 (Version None)
Quarter: 2009Q1

REPORT INFORMATION
  Report Type: 
  Country: None (occurrence: None)
  Receive Date: 20090206
  Receipt Date: 20090202
  Transmission Date: 20090719
  Serious: Yes (Death)
  Sender: FDA-Public Use
  Company Number: ZM-GILEAD-2009-0020131

PATIENT
  Age: 30 Year
  Sex: Female
  Weight: 62 kg

DRUGS (6)
  1. TRUVADA [Suspect]
     Indication: HIV INFECTION
     Route: 048
     Dates: start: 20080725, end: 20081228
  2. TRUVADA [Suspect]
     Route: 048
     Dates: start: 20070605, end: 20080118
  3. ALUVIA [Suspect]
     Indication: HIV INFECTION
     Dates: start: 20070605, end: 20080725
  4. ZIDOVUDINE [Suspect]
     Indication: HIV INFECTION
     Dates: start: 20080118, end: 20080725
  5. EFAVIRENZ [Suspect]
     Indication: HIV INFECTION
     Dates: start: 20080725, end: 20081228
  6. BACTRIM [Concomitant]

REACTIONS (2)
  - DEATH [None]
  - PREGNANCY [None]
